FAERS Safety Report 10492161 (Version 4)
Quarter: 2015Q2

REPORT INFORMATION
  Report Type: Spontaneous
  Country: US (occurrence: US)
  Receive Date: 20141002
  Receipt Date: 20150421
  Transmission Date: 20150821
  Serious: No
  Sender: FDA-Public Use
  Company Number: US-GLAXOSMITHKLINE-A1066111A

PATIENT
  Sex: Female

DRUGS (9)
  1. THYROID MEDICATION [Concomitant]
     Active Substance: UNSPECIFIED INGREDIENT
  2. POTASSIUM [Concomitant]
     Active Substance: POTASSIUM
  3. VITAMIN D [Concomitant]
     Active Substance: CHOLECALCIFEROL
  4. ADVAIR DISKUS [Suspect]
     Active Substance: FLUTICASONE PROPIONATE\SALMETEROL XINAFOATE
     Indication: ASTHMA
     Dosage: 250/50
     Route: 055
     Dates: start: 1995
  5. VITAMIN C [Concomitant]
     Active Substance: ASCORBIC ACID
  6. GLUCOSAMINE [Concomitant]
     Active Substance: GLUCOSAMINE
  7. ALBUTEROL NEBULIZER [Concomitant]
     Active Substance: ALBUTEROL
  8. VENTOLIN [Suspect]
     Active Substance: ALBUTEROL SULFATE
     Indication: PRODUCT USED FOR UNKNOWN INDICATION
     Dosage: 90 MCG, UNKNOWN DOSING
     Route: 065
     Dates: start: 20111027
  9. BABY ASPIRIN [Concomitant]
     Active Substance: ASPIRIN

REACTIONS (6)
  - Cough [Unknown]
  - Multiple allergies [Unknown]
  - Nasopharyngitis [Not Recovered/Not Resolved]
  - Aphasia [Unknown]
  - Influenza [Unknown]
  - Vocal cord disorder [Unknown]
